FAERS Safety Report 7823992-7 (Version None)
Quarter: 2011Q4

REPORT INFORMATION
  Report Type: 
  Country: None (occurrence: None)
  Receive Date: 20111019
  Receipt Date: 20111012
  Transmission Date: 20120403
  Serious: Yes (Death)
  Sender: FDA-Public Use
  Company Number: FR-SANOFI-AVENTIS-2011SA068152

PATIENT

DRUGS (7)
  1. IRINOTECAN HCL [Suspect]
     Indication: COLORECTAL CANCER
     Route: 065
  2. FLUOROURACIL [Suspect]
     Indication: COLORECTAL CANCER
     Route: 065
  3. FLUOROURACIL [Suspect]
     Route: 065
  4. LEUCOVORIN CALCIUM [Suspect]
     Indication: COLORECTAL CANCER
     Route: 065
  5. LEUCOVORIN CALCIUM [Suspect]
     Route: 065
  6. CETUXIMAB [Suspect]
     Indication: COLORECTAL CANCER
     Route: 065
  7. OXALIPLATIN [Suspect]
     Indication: COLORECTAL CANCER
     Route: 065

REACTIONS (16)
  - CEREBROVASCULAR ACCIDENT [None]
  - ALOPECIA [None]
  - PERIPHERAL SENSORY NEUROPATHY [None]
  - VOMITING [None]
  - NAUSEA [None]
  - SEPSIS [None]
  - ANAEMIA [None]
  - CARDIOMYOPATHY [None]
  - NEUTROPENIA [None]
  - ANAPHYLACTIC SHOCK [None]
  - SKIN TOXICITY [None]
  - DIARRHOEA [None]
  - STOMATITIS [None]
  - CARDIOTOXICITY [None]
  - THROMBOCYTOPENIA [None]
  - INTESTINAL ISCHAEMIA [None]
